FAERS Safety Report 24263744 (Version 1)
Quarter: 2024Q3

REPORT INFORMATION
  Report Type: Report from Study
  Country: TW (occurrence: TW)
  Receive Date: 20240829
  Receipt Date: 20240829
  Transmission Date: 20241016
  Serious: Yes (Other)
  Sender: PFIZER
  Company Number: TW-PFIZER INC-PV202400111481

PATIENT
  Age: 69 Year
  Sex: Female

DRUGS (2)
  1. CISPLATIN [Suspect]
     Active Substance: CISPLATIN
     Indication: Small intestine adenocarcinoma
     Dosage: UNK, CYCLIC
  2. GEMCITABINE HYDROCHLORIDE [Suspect]
     Active Substance: GEMCITABINE HYDROCHLORIDE
     Indication: Small intestine adenocarcinoma
     Dosage: UNK, CYCLIC

REACTIONS (2)
  - Febrile neutropenia [Unknown]
  - Septic shock [Unknown]
